FAERS Safety Report 10155039 (Version 1)
Quarter: 2014Q2

REPORT INFORMATION
  Report Type: Spontaneous
  Country: US (occurrence: US)
  Receive Date: 20140506
  Receipt Date: 20140506
  Transmission Date: 20141212
  Serious: Yes (Other)
  Sender: FDA-Public Use
  Company Number: US-PFIZER INC-2014121311

PATIENT
  Sex: Female

DRUGS (4)
  1. LYRICA [Suspect]
     Dosage: UNK
  2. DIAZEPAM [Interacting]
     Dosage: UNK
  3. NORCO [Interacting]
     Dosage: UNK
  4. SOMA [Interacting]
     Dosage: UNK

REACTIONS (2)
  - Drug interaction [Unknown]
  - Hepatic failure [Unknown]
